FAERS Safety Report 11058722 (Version 1)
Quarter: 2015Q2

REPORT INFORMATION
  Report Type: Spontaneous
  Country: US (occurrence: None)
  Receive Date: 20150415
  Receipt Date: 20150415
  Transmission Date: 20150821
  Serious: Yes (Other)
  Sender: FDA-Public Use
  Company Number: FK201404959

PATIENT

DRUGS (1)
  1. HEPARIN SODIUM INJECTION (HEPARIN SODIUM) [Suspect]
     Active Substance: HEPARIN SODIUM
     Indication: VASCULAR OPERATION
     Route: 042
     Dates: start: 20141027

REACTIONS (2)
  - Drug ineffective [None]
  - Thrombosis [None]

NARRATIVE: CASE EVENT DATE: 20141027
